FAERS Safety Report 7638944-X (Version None)
Quarter: 2011Q3

REPORT INFORMATION
  Report Type: 
  Country: None (occurrence: None)
  Receive Date: 20110727
  Receipt Date: 20110718
  Transmission Date: 20111222
  Serious: Yes (Hospitalization)
  Sender: FDA-Public Use
  Company Number: FR-ASTRAZENECA-2011SE43891

PATIENT
  Sex: Female

DRUGS (5)
  1. TENORMIN [Suspect]
     Route: 048
     Dates: end: 20100101
  2. SECTRAL [Suspect]
     Route: 048
     Dates: start: 20100101
  3. NICARDIPINE HCL [Suspect]
     Route: 048
     Dates: start: 20100101
  4. METFORMIN HCL [Concomitant]
     Dates: end: 20100101
  5. INDAPAMIDE [Suspect]
     Route: 048
     Dates: start: 20091017, end: 20100101

REACTIONS (2)
  - OLIGOHYDRAMNIOS [None]
  - MATERNAL EXPOSURE DURING PREGNANCY [None]
